FAERS Safety Report 7710142-0 (Version None)
Quarter: 2011Q3

REPORT INFORMATION
  Report Type: 
  Country: None (occurrence: None)
  Receive Date: 20110825
  Receipt Date: 20110822
  Transmission Date: 20111222
  Serious: Yes (Other)
  Sender: FDA-Public Use
  Company Number: GB-PFIZER INC-2011100507

PATIENT
  Age: 46 Year
  Sex: Female

DRUGS (3)
  1. AMLODIPINE [Concomitant]
  2. GLEEVEC [Suspect]
     Indication: GASTROINTESTINAL STROMAL TUMOUR
     Dosage: 400 MG, 1X/DAY
     Route: 048
     Dates: start: 20081101, end: 20101201
  3. SUTENT [Suspect]
     Indication: GASTROINTESTINAL STROMAL TUMOUR
     Dosage: 50 MG, UNK
     Dates: start: 20110101, end: 20110301

REACTIONS (7)
  - NAUSEA [None]
  - PAIN IN EXTREMITY [None]
  - OROPHARYNGEAL PAIN [None]
  - DIARRHOEA [None]
  - DISEASE PROGRESSION [None]
  - FATIGUE [None]
  - GASTROINTESTINAL STROMAL TUMOUR [None]
